FAERS Safety Report 9637360 (Version 1)
Quarter: 2013Q4

REPORT INFORMATION
  Report Type: Spontaneous
  Country: DE (occurrence: DE)
  Receive Date: 20131022
  Receipt Date: 20131022
  Transmission Date: 20140711
  Serious: Yes (Other)
  Sender: FDA-Public Use
  Company Number: PHHY2013DE117779

PATIENT
  Age: 40 Year
  Sex: Female

DRUGS (2)
  1. TRILEPTAL [Suspect]
     Dosage: 2250 MG, DAILY
     Route: 048
  2. TRILEPTAL [Suspect]
     Dosage: 2100 MG, DAILY
     Route: 048

REACTIONS (4)
  - Convulsion [Not Recovered/Not Resolved]
  - Weight decreased [Unknown]
  - Decreased appetite [Unknown]
  - Drug level increased [Not Recovered/Not Resolved]
